FAERS Safety Report 22275117 (Version 1)
Quarter: 2023Q2

REPORT INFORMATION
  Report Type: Spontaneous
  Country: GB (occurrence: GB)
  Receive Date: 20230502
  Receipt Date: 20230502
  Transmission Date: 20230722
  Serious: Yes (Hospitalization, Other)
  Sender: FDA-Public Use
  Company Number: GB-ORCHIDPHARMA-2023ORC00005

PATIENT
  Age: 48 Year
  Sex: Female
  Weight: 52 kg

DRUGS (2)
  1. CEPHALEXIN [Suspect]
     Active Substance: CEPHALEXIN
     Indication: Urinary tract infection
  2. NITROFURANTOIN [Suspect]
     Active Substance: NITROFURANTOIN
     Indication: Urinary tract infection

REACTIONS (4)
  - Inappropriate antidiuretic hormone secretion [Recovered/Resolved]
  - Generalised tonic-clonic seizure [Recovered/Resolved]
  - Lactic acidosis [Recovered/Resolved]
  - Scalp haematoma [Recovered/Resolved]
